FAERS Safety Report 6014177-8 (Version None)
Quarter: 2008Q4

REPORT INFORMATION
  Report Type: 
  Country: None (occurrence: None)
  Receive Date: 20081219
  Receipt Date: 20080129
  Transmission Date: 20090506
  Serious: No
  Sender: FDA-Public Use
  Company Number: A0707208A

PATIENT
  Age: 69 Year
  Sex: Male

DRUGS (7)
  1. AVODART [Suspect]
     Indication: DRUG USE FOR UNKNOWN INDICATION
     Dosage: .5MG PER DAY
     Route: 048
     Dates: start: 20071001
  2. VERAPAMIL [Concomitant]
  3. ACCUPRIL [Concomitant]
  4. LIPITOR [Concomitant]
  5. ETODOLAC [Concomitant]
  6. SYNTHROID [Concomitant]
  7. NIASPAN [Concomitant]

REACTIONS (1)
  - DRUG INEFFECTIVE [None]
